FAERS Safety Report 5996656-2 (Version None)
Quarter: 2008Q4

REPORT INFORMATION
  Report Type: 
  Country: None (occurrence: None)
  Receive Date: 20081212
  Receipt Date: 20081211
  Transmission Date: 20090506
  Serious: Yes (Other)
  Sender: FDA-Public Use
  Company Number: JP-MERCK-0812USA01908

PATIENT
  Age: 56 Year
  Sex: Female
  Weight: 59 kg

DRUGS (7)
  1. HYZAAR [Suspect]
     Indication: HYPERTENSION
     Route: 048
     Dates: start: 20081107, end: 20081124
  2. TENORMIN [Concomitant]
     Route: 048
  3. LIPITOR [Concomitant]
     Route: 048
  4. TAMBOCOR [Concomitant]
     Route: 048
  5. MAGMITT [Concomitant]
     Route: 048
  6. BLOPRESS [Concomitant]
     Route: 048
  7. FLUITRAN [Concomitant]
     Route: 048

REACTIONS (2)
  - BREAST ENLARGEMENT [None]
  - BREAST PAIN [None]
